FAERS Safety Report 18958892 (Version 2)
Quarter: 2021Q2

REPORT INFORMATION
  Report Type: Report from Study
  Country: GB (occurrence: JP)
  Receive Date: 20210302
  Receipt Date: 20210408
  Transmission Date: 20210717
  Serious: Yes (Hospitalization, Other)
  Sender: FDA-Public Use
  Company Number: JP-ASTELLAS-2017US034645

PATIENT
  Age: 52 Year
  Sex: Female
  Weight: 55 kg

DRUGS (10)
  1. IBUPROFEN PICONOL [Concomitant]
     Active Substance: IBUPROFEN PICONOL
     Indication: PRODUCT USED FOR UNKNOWN INDICATION
     Dosage: UNK, UNKNOWN FREQ.DOSAGE IS UNCERTAIN.
     Route: 065
     Dates: start: 201601
  2. L?MENTHOL [Concomitant]
     Indication: PRODUCT USED FOR UNKNOWN INDICATION
     Dosage: DOSAGE IS UNCERTAIN.
     Route: 065
     Dates: start: 201601
  3. METOCLOPRAMIDE. [Concomitant]
     Active Substance: METOCLOPRAMIDE
     Indication: PRODUCT USED FOR UNKNOWN INDICATION
     Dosage: UNK, UNKNOWN FREQ. (DOSAGE IS UNCERTAIN)
     Route: 065
     Dates: start: 20170611
  4. COIX SEED [Concomitant]
     Indication: PRODUCT USED FOR UNKNOWN INDICATION
     Dosage: UNK UNK, UNKNOWN FREQ.(DOSAGE UNCERTAIN)
     Route: 065
     Dates: start: 201601
  5. ERLOTINIB [Suspect]
     Active Substance: ERLOTINIB
     Indication: LUNG ADENOCARCINOMA
     Route: 048
     Dates: start: 20170609, end: 20180703
  6. HEPARINOID [Concomitant]
     Active Substance: CHONDROITIN SULFATE (BOVINE)
     Indication: PRODUCT USED FOR UNKNOWN INDICATION
     Dosage: UNK UNK, UNKNOWN FREQ. (DOSAGE IS UNCERTAIN)
     Route: 065
     Dates: start: 201601
  7. ACETAMINOPHEN. [Concomitant]
     Active Substance: ACETAMINOPHEN
     Indication: PRODUCT USED FOR UNKNOWN INDICATION
     Dosage: UNK UNK, UNKNOWN FREQ.(DOSAGE IS UNCERTAIN)
     Route: 065
     Dates: start: 20170416
  8. CODEINE PHOSPHATE [Concomitant]
     Active Substance: CODEINE PHOSPHATE
     Indication: PRODUCT USED FOR UNKNOWN INDICATION
     Dosage: UNK UNK, UNKNOWN FREQ.(DOSAGE IS UNCERTAIN)
     Route: 065
     Dates: start: 20170419
  9. LEVOMENTHOL [Concomitant]
     Active Substance: LEVOMENTHOL
     Indication: PRODUCT USED FOR UNKNOWN INDICATION
     Dosage: UNK UNK, UNKNOWN FREQ. (DOSAGE IS UNCERTAIN)
     Route: 065
     Dates: start: 201601
  10. DIPHENHYDRAMINE. [Concomitant]
     Active Substance: DIPHENHYDRAMINE
     Indication: PRODUCT USED FOR UNKNOWN INDICATION
     Dosage: UNK UNK, UNKNOWN FREQ.(DOSAGE IS UNCERTAIN)
     Route: 065
     Dates: start: 201601

REACTIONS (3)
  - Cardiac failure [Recovered/Resolved]
  - Neutrophil count decreased [Recovered/Resolved with Sequelae]
  - Neutrophil count decreased [Recovered/Resolved with Sequelae]

NARRATIVE: CASE EVENT DATE: 20170804
